FAERS Safety Report 24339887 (Version 4)
Quarter: 2024Q4

REPORT INFORMATION
  Report Type: Spontaneous
  Country: US (occurrence: US)
  Receive Date: 20240919
  Receipt Date: 20241011
  Transmission Date: 20250115
  Serious: No
  Sender: BAYER
  Company Number: US-BAYER-2024A132739

PATIENT
  Age: 27 Year
  Sex: Female
  Weight: 104.3 kg

DRUGS (1)
  1. ESTRADIOL [Suspect]
     Active Substance: ESTRADIOL
     Indication: Oestrogen therapy
     Dosage: 1 DF, OW
     Route: 062
     Dates: start: 20210904

REACTIONS (3)
  - Device defective [None]
  - Device adhesion issue [None]
  - Blood oestrogen decreased [Recovering/Resolving]

NARRATIVE: CASE EVENT DATE: 20230715
